FAERS Safety Report 7288374-8 (Version None)
Quarter: 2011Q1

REPORT INFORMATION
  Report Type: 
  Country: None (occurrence: None)
  Receive Date: 20110211
  Receipt Date: 20110208
  Transmission Date: 20110831
  Serious: Yes (Other)
  Sender: FDA-Public Use
  Company Number: JP-SANOFI-AVENTIS-2011SA008308

PATIENT
  Age: 35 Year
  Sex: Female
  Weight: 78 kg

DRUGS (10)
  1. LANTUS [Suspect]
     Indication: TYPE 2 DIABETES MELLITUS
     Route: 058
     Dates: start: 20100106, end: 20100120
  2. BONALON [Concomitant]
     Indication: BACK PAIN
     Route: 048
     Dates: start: 20090613
  3. METFORMIN HYDROCHLORIDE [Concomitant]
     Indication: TYPE 2 DIABETES MELLITUS
     Route: 048
     Dates: start: 20090828
  4. LANTUS [Suspect]
     Route: 058
     Dates: start: 20100525, end: 20100705
  5. LANTUS [Suspect]
     Route: 058
     Dates: start: 20100121, end: 20100524
  6. EXENATIDE [Suspect]
     Indication: TYPE 2 DIABETES MELLITUS
     Route: 058
     Dates: start: 20100707, end: 20101216
  7. LOXONIN [Concomitant]
     Indication: RADICULITIS
     Route: 048
     Dates: start: 20090525
  8. SOLOSTAR [Suspect]
     Dates: start: 20100106, end: 20100705
  9. URSO 250 [Concomitant]
     Indication: CHOLELITHIASIS
     Route: 048
     Dates: start: 20110120
  10. OMEPRAZOLE [Concomitant]
     Indication: GASTRITIS PROPHYLAXIS
     Route: 048
     Dates: start: 20101104

REACTIONS (1)
  - THYROID CANCER [None]
